FAERS Safety Report 16430708 (Version 1)
Quarter: 2019Q3

REPORT INFORMATION
  Report Type: Spontaneous
  Country: US (occurrence: US)
  Receive Date: 20190613
  Receipt Date: 20190613
  Transmission Date: 20191004
  Serious: Yes (Hospitalization)
  Sender: FDA-Public Use
  Company Number: None

PATIENT
  Age: 36 Year
  Sex: Male

DRUGS (4)
  1. BUMETANIDE. [Concomitant]
     Active Substance: BUMETANIDE
  2. SILDENAFIL. [Suspect]
     Active Substance: SILDENAFIL
     Indication: HEART TRANSPLANT
     Dosage: ?          OTHER FREQUENCY:3 TIMES A DAY;?
     Route: 048
     Dates: start: 20180621
  3. MYCHOPHENOLATE [Concomitant]
  4. PREDNISONE. [Concomitant]
     Active Substance: PREDNISONE

REACTIONS (1)
  - Gout [None]

NARRATIVE: CASE EVENT DATE: 20190605
